FAERS Safety Report 21222922 (Version 1)
Quarter: 2022Q3

REPORT INFORMATION
  Report Type: Spontaneous
  Country: CA (occurrence: CA)
  Receive Date: 20220817
  Receipt Date: 20220817
  Transmission Date: 20221027
  Serious: Yes (Death)
  Sender: FDA-Public Use
  Company Number: CA-PFIZER INC-2020417136

PATIENT
  Age: 90 Year
  Sex: Female

DRUGS (7)
  1. IBRANCE [Suspect]
     Active Substance: PALBOCICLIB
     Dosage: 125 MG, CYCLIC (TAKE 1 CAP BY MOUTH ONCE DAILY FOR 21 DAYS IN A ROW. STOP FOR 7 DAYS)
     Route: 048
     Dates: start: 20200527, end: 2020
  2. IBRANCE [Suspect]
     Active Substance: PALBOCICLIB
     Dosage: 125 MG, CYCLIC (TAKE 1 CAP BY MOUTH ONCE DAILY FOR 21 DAYS IN A ROW. STOP FOR 7 DAYS)
     Route: 048
     Dates: start: 20201208, end: 2020
  3. AMLODIPINE [Concomitant]
     Active Substance: AMLODIPINE BESYLATE
     Dosage: 5 MG, DAILY
  4. CANDESARTAN [Concomitant]
     Active Substance: CANDESARTAN
     Dosage: 8 MG, DAILY
  5. RABEPRAZOLE [Concomitant]
     Active Substance: RABEPRAZOLE
     Dosage: 20 MG, 2X/DAY
  6. ASPIRIN [Concomitant]
     Active Substance: ASPIRIN
     Dosage: UNK, AS NEEDED (PRN)
  7. FASLODEX [Concomitant]
     Active Substance: FULVESTRANT
     Dosage: 500 MG, 250 MG/5 MG SYR, INJECT CONTENTS OF 2 PREFILLED ;250 MG SYRINGES (TOTAL= 500 MG)

REACTIONS (3)
  - Death [Fatal]
  - Neutrophil count decreased [Unknown]
  - Full blood count abnormal [Unknown]

NARRATIVE: CASE EVENT DATE: 20200101
